FAERS Safety Report 12320072 (Version 1)
Quarter: 2016Q2

REPORT INFORMATION
  Report Type: Spontaneous
  Country: US (occurrence: US)
  Receive Date: 20160429
  Receipt Date: 20160429
  Transmission Date: 20160815
  Serious: Yes (Other)
  Sender: FDA-Public Use
  Company Number: US-VIIV HEALTHCARE LIMITED-US2016GSK059327

PATIENT
  Sex: Male

DRUGS (1)
  1. TRIUMEQ [Suspect]
     Active Substance: ABACAVIR SULFATE\DOLUTEGRAVIR SODIUM\LAMIVUDINE
     Indication: HIV INFECTION
     Dosage: 1 DF, QD
     Route: 048
     Dates: start: 201504

REACTIONS (3)
  - Drug ineffective [Not Recovered/Not Resolved]
  - Viral load increased [Not Recovered/Not Resolved]
  - Pathogen resistance [Not Recovered/Not Resolved]

NARRATIVE: CASE EVENT DATE: 201504
